FAERS Safety Report 4604324-4 (Version None)
Quarter: 2005Q1

REPORT INFORMATION
  Report Type: 
  Country: None (occurrence: None)
  Receive Date: 20050310
  Receipt Date: 20050218
  Transmission Date: 20050727
  Serious: Yes (Other)
  Sender: FDA-Public Use
  Company Number: COMP05-0003

PATIENT
  Sex: Female

DRUGS (1)
  1. AMPHETAMINE ASP AMPHETAMINE SULF DEXTROAMPHET SACCHARATE + DEXTR SULF [Suspect]
     Indication: ATTENTION DEFICIT/HYPERACTIVITY DISORDER
     Dosage: 30 MG ORALLY
     Route: 048
     Dates: start: 20050202, end: 20050218

REACTIONS (4)
  - ARTHRITIS [None]
  - CHOLECYSTECTOMY [None]
  - SCAR [None]
  - URTICARIA [None]
